FAERS Safety Report 23645052 (Version 1)
Quarter: 2024Q1

REPORT INFORMATION
  Report Type: Spontaneous
  Country: US (occurrence: US)
  Receive Date: 20240318
  Receipt Date: 20240318
  Transmission Date: 20240410
  Serious: No
  Sender: FDA-Public Use
  Company Number: US-SMITH AND NEPHEW, INC-2023SMT00084

PATIENT
  Age: 94 Year
  Sex: Female
  Weight: 56.689 kg

DRUGS (7)
  1. COLLAGENASE SANTYL [Suspect]
     Active Substance: COLLAGENASE CLOSTRIDIUM HISTOLYTICUM
     Indication: Wound
     Dosage: UNK
     Route: 061
  2. COLLAGENASE SANTYL [Suspect]
     Active Substance: COLLAGENASE CLOSTRIDIUM HISTOLYTICUM
     Dosage: NICKEL THICKNESS SIZED AMOUNT, 1X/DAY (CHANGING THE BANDAGE EVERY DAY)
     Route: 061
     Dates: start: 202311, end: 2023
  3. COLLAGENASE SANTYL [Suspect]
     Active Substance: COLLAGENASE CLOSTRIDIUM HISTOLYTICUM
     Dosage: NICKEL THICKNESS SIZED AMOUNT, 1X/DAY (CHANGING THE BANDAGE EVERY DAY)
     Route: 061
     Dates: start: 2023
  4. HYDROXYUREA [Concomitant]
     Active Substance: HYDROXYUREA
     Dosage: 500 MG, EVERY OTHER DAY (ALTERNATING WITH 1000 MG DOSE)
  5. HYDROXYUREA [Concomitant]
     Active Substance: HYDROXYUREA
     Dosage: 1000 MG, EVERY OTHER DAY (ALTERNATING WITH 500 MG DOSE)
  6. CRESTOR [Concomitant]
     Active Substance: ROSUVASTATIN CALCIUM
     Dosage: 10 MG, 1X/DAY
  7. ASPIRIN [Concomitant]
     Active Substance: ASPIRIN
     Dosage: 1 DOSAGE FORM, 1X/DAY

REACTIONS (1)
  - Therapeutic product effect decreased [Recovering/Resolving]

NARRATIVE: CASE EVENT DATE: 20231101
